FAERS Safety Report 4836022-6 (Version None)
Quarter: 2005Q4

REPORT INFORMATION
  Report Type: 
  Country: None (occurrence: None)
  Receive Date: 20051123
  Receipt Date: 20051004
  Transmission Date: 20060501
  Serious: Yes (Hospitalization)
  Sender: FDA-Public Use
  Company Number: US-MERCK-0510USA03087

PATIENT
  Age: 40 Year
  Sex: Male
  Weight: 66 kg

DRUGS (9)
  1. VIOXX [Suspect]
     Indication: ARTHRALGIA
     Route: 048
     Dates: start: 20001020, end: 20020606
  2. ORPHENADRINE [Concomitant]
     Route: 065
  3. HYDROCODONE BITARTRATE [Concomitant]
     Route: 065
  4. AMBIEN [Concomitant]
     Route: 065
  5. ZITHROMAX [Concomitant]
     Route: 065
  6. ALBUTEROL [Concomitant]
     Route: 065
  7. BIAXIN [Concomitant]
     Route: 065
  8. ZANAFLEX [Concomitant]
     Route: 065
  9. DIAZEPAM [Concomitant]
     Route: 065

REACTIONS (2)
  - ACUTE MYOCARDIAL INFARCTION [None]
  - CORONARY ARTERY DISEASE [None]
